FAERS Safety Report 10088895 (Version 1)
Quarter: 2014Q2

REPORT INFORMATION
  Report Type: Spontaneous
  Country: US (occurrence: US)
  Receive Date: 20140421
  Receipt Date: 20140421
  Transmission Date: 20141212
  Serious: Yes (Hospitalization, Other)
  Sender: FDA-Public Use
  Company Number: US-AMGEN-USASP2014027328

PATIENT
  Sex: Male

DRUGS (1)
  1. NPLATE [Suspect]
     Indication: HAEMOLYTIC ANAEMIA
     Dosage: UNK
     Route: 065

REACTIONS (3)
  - Haemorrhage [Unknown]
  - Therapeutic response decreased [Unknown]
  - Unevaluable event [Unknown]
